FAERS Safety Report 13016584 (Version 1)
Quarter: 2016Q4

REPORT INFORMATION
  Report Type: Spontaneous
  Country: GB (occurrence: GB)
  Receive Date: 20161212
  Receipt Date: 20161212
  Transmission Date: 20170207
  Serious: Yes (Hospitalization)
  Sender: FDA-Public Use
  Company Number: GB-ACCORD-046226

PATIENT
  Age: 19 Year
  Sex: Male
  Weight: 62.4 kg

DRUGS (2)
  1. QUETIAPINE. [Suspect]
     Active Substance: QUETIAPINE
     Indication: ACUTE PSYCHOSIS
     Dosage: TITRATED
     Route: 048
     Dates: start: 20160420, end: 20160710
  2. CLOZAPINE. [Concomitant]
     Active Substance: CLOZAPINE

REACTIONS (5)
  - Abnormal behaviour [Unknown]
  - Somnolence [Unknown]
  - Anger [Recovered/Resolved]
  - Heart rate increased [Unknown]
  - Mood swings [Unknown]

NARRATIVE: CASE EVENT DATE: 201604
